FAERS Safety Report 5279956-3 (Version None)
Quarter: 2007Q1

REPORT INFORMATION
  Report Type: 
  Country: None (occurrence: None)
  Receive Date: 20070329
  Receipt Date: 20070322
  Transmission Date: 20070707
  Serious: Yes (Death, Other)
  Sender: FDA-Public Use
  Company Number: US-JNJFOC-20070305646

PATIENT
  Sex: Female
  Weight: 53.98 kg

DRUGS (1)
  1. DURAGESIC-100 [Suspect]
     Indication: PAIN
     Route: 062
     Dates: start: 20020121, end: 20020127

REACTIONS (3)
  - DEMENTIA [None]
  - DEMENTIA ALZHEIMER'S TYPE [None]
  - PARKINSON'S DISEASE [None]
